FAERS Safety Report 6713667-X (Version None)
Quarter: 2010Q2

REPORT INFORMATION
  Report Type: 
  Country: None (occurrence: None)
  Receive Date: 20100506
  Receipt Date: 20100428
  Transmission Date: 20101027
  Serious: Yes (Other)
  Sender: FDA-Public Use
  Company Number: US-JNJCH-2010010349

PATIENT
  Age: 56 Year
  Sex: Male
  Weight: 74.8 kg

DRUGS (1)
  1. CALADRYL [Suspect]
     Indication: EXPOSURE TO TOXIC AGENT
     Dosage: TEXT:3 OR 4 TIMES A DAY AS NEEDED
     Route: 061
     Dates: start: 20100424, end: 20100428

REACTIONS (3)
  - APPLICATION SITE PAIN [None]
  - APPLICATION SITE SCAB [None]
  - RASH MACULAR [None]
